FAERS Safety Report 5470706-4 (Version None)
Quarter: 2007Q3

REPORT INFORMATION
  Report Type: 
  Country: None (occurrence: None)
  Receive Date: 20070928
  Receipt Date: 20070924
  Transmission Date: 20080115
  Serious: Yes (Death)
  Sender: FDA-Public Use
  Company Number: DE-NOVOPROD-267863

PATIENT

DRUGS (2)
  1. NOVOSEVEN [Suspect]
     Indication: HAEMORRHAGE
  2. DICLOFENAC [Concomitant]

REACTIONS (1)
  - DRUG INEFFECTIVE [None]
